FAERS Safety Report 8730968 (Version 2)
Quarter: 2012Q4

REPORT INFORMATION
  Report Type: Spontaneous
  Country: US (occurrence: None)
  Receive Date: 20120730
  Receipt Date: 20120815
  Transmission Date: 20130627
  Serious: Yes (Hospitalization)
  Sender: FDA-Public Use
  Company Number: 2012PROUSA01683

PATIENT
  Age: 79 Year
  Sex: Male

DRUGS (1)
  1. PROVENGE [Suspect]
     Indication: PROSTATE CANCER METASTATIC
     Dosage: 250 ML, SINGLE, INTRAVENOUS
     Route: 042
     Dates: start: 20120712, end: 20120712

REACTIONS (10)
  - Dyspnoea [None]
  - Chills [None]
  - Pyrexia [None]
  - Infusion related reaction [None]
  - Acute respiratory failure [None]
  - Cardiomegaly [None]
  - Pneumonia [None]
  - Microcytic anaemia [None]
  - Hypocalcaemia [None]
  - Constipation [None]
